FAERS Safety Report 5856044-6 (Version None)
Quarter: 2008Q3

REPORT INFORMATION
  Report Type: 
  Country: None (occurrence: None)
  Receive Date: 20080825
  Receipt Date: 20080818
  Transmission Date: 20090109
  Serious: Yes (Other)
  Sender: FDA-Public Use
  Company Number: GB-GILEAD-2008-0016943

PATIENT

DRUGS (3)
  1. ATRIPLA [Suspect]
  2. SUSTIVA [Concomitant]
  3. TRUVADA [Concomitant]

REACTIONS (1)
  - VIRAL LOAD INCREASED [None]
